FAERS Safety Report 7399965-8 (Version None)
Quarter: 2011Q2

REPORT INFORMATION
  Report Type: 
  Country: None (occurrence: None)
  Receive Date: 20110407
  Receipt Date: 20110325
  Transmission Date: 20111010
  Serious: Yes (Other)
  Sender: FDA-Public Use
  Company Number: JP-JNJFOC-20110400003

PATIENT
  Age: 82 Year
  Sex: Female

DRUGS (5)
  1. ACTOS [Concomitant]
     Route: 048
  2. ASPIRIN [Concomitant]
     Route: 048
  3. GALANTAMINE HYDROBROMIDE [Suspect]
     Indication: DEMENTIA ALZHEIMER'S TYPE
     Route: 048
  4. TAKEPRON [Concomitant]
     Route: 048
  5. HALCION [Concomitant]
     Route: 048

REACTIONS (1)
  - DELUSION [None]
